FAERS Safety Report 17751335 (Version 1)
Quarter: 2020Q2

REPORT INFORMATION
  Report Type: Spontaneous
  Country: TR (occurrence: TR)
  Receive Date: 20200506
  Receipt Date: 20200506
  Transmission Date: 20200714
  Serious: Yes (Other)
  Sender: FDA-Public Use
  Company Number: NVSC2020TR122326

PATIENT
  Age: 72 Year
  Sex: Male

DRUGS (3)
  1. M COLCHICINE [Concomitant]
     Indication: PAIN IN EXTREMITY
     Dosage: UNK
     Route: 065
  2. M COLCHICINE [Concomitant]
     Indication: PERIPHERAL SWELLING
  3. ALLOPURINOL. [Suspect]
     Active Substance: ALLOPURINOL
     Indication: BLOOD URIC ACID ABNORMAL
     Dosage: 150 MG, QD
     Route: 065

REACTIONS (4)
  - Medication error [Unknown]
  - Pruritus [Recovering/Resolving]
  - Drug ineffective [Unknown]
  - Scar [Not Recovered/Not Resolved]
